FAERS Safety Report 12405024 (Version 7)
Quarter: 2020Q4

REPORT INFORMATION
  Report Type: Spontaneous
  Country: US (occurrence: US)
  Receive Date: 20160525
  Receipt Date: 20201209
  Transmission Date: 20210113
  Serious: Yes (Hospitalization, Other)
  Sender: FDA-Public Use
  Company Number: US-PFIZER INC-2016267984

PATIENT
  Age: 65 Year
  Sex: Female
  Weight: 91 kg

DRUGS (33)
  1. ALEVE [Concomitant]
     Active Substance: NAPROXEN SODIUM
     Dosage: 220 MG, AS NEEDED (2 TIMES PER DAY)
     Route: 048
     Dates: end: 20160720
  2. ASPIRIN. [Concomitant]
     Active Substance: ASPIRIN
     Dosage: 81 MG, DAILY
     Route: 048
     Dates: start: 2013
  3. FLEXERIL [Concomitant]
     Active Substance: CYCLOBENZAPRINE HYDROCHLORIDE
     Dosage: UNK
     Dates: start: 2015
  4. OMEPRAZOLE. [Concomitant]
     Active Substance: OMEPRAZOLE
     Dosage: 20 MG, 2X/DAY
     Route: 048
     Dates: end: 20160720
  5. AMLODIPINE [Concomitant]
     Active Substance: AMLODIPINE BESYLATE
     Dosage: UNK
  6. ATORVASTATIN [Concomitant]
     Active Substance: ATORVASTATIN
     Dosage: 20 MG, DAILY
     Route: 048
     Dates: end: 20160720
  7. CALCIUM [Concomitant]
     Active Substance: CALCIUM
     Dosage: UNK UNK, DAILY
     Route: 048
  8. INCRUSE ELLIPTA [Concomitant]
     Active Substance: UMECLIDINIUM BROMIDE
     Dosage: 6.25 UG, DAILY
     Route: 048
     Dates: end: 20160720
  9. LYRICA [Suspect]
     Active Substance: PREGABALIN
     Indication: PAIN IN EXTREMITY
  10. DOXYCYCLINE. [Concomitant]
     Active Substance: DOXYCYCLINE
     Dosage: UNK
     Dates: start: 2014, end: 201607
  11. RESTASIS [Concomitant]
     Active Substance: CYCLOSPORINE
     Dosage: 1 GTT, DAILY (EVERY 12 HOURS)
     Route: 047
     Dates: start: 201506
  12. RESTASIS [Concomitant]
     Active Substance: CYCLOSPORINE
     Dosage: 1 GTT, DAILY (EVERY 12 HOURS)
     Route: 047
     Dates: end: 20160720
  13. OMEPRAZOLE. [Concomitant]
     Active Substance: OMEPRAZOLE
     Dosage: 20 MG, 2X/DAY
     Route: 048
     Dates: start: 2015
  14. NORCO [Concomitant]
     Active Substance: ACETAMINOPHEN\HYDROCODONE BITARTRATE
     Dosage: 1 DF, AS NEEDED (HYDROCODONE BITARTRATE:5MG/PARACETAMOL: 325MG AT 1 TABLET DAILY AS NEEDED)
     Route: 048
  15. ALBUTEROL. [Concomitant]
     Active Substance: ALBUTEROL
     Indication: WHEEZING
     Dosage: UNK, AS NEEDED (90MCG/ACTUATION AEROSOL; DOSE: 1 INHALATION; ROUTE: INHALED; EVERY 4 HOUR)
     Dates: end: 20160718
  16. MELATONIN [Concomitant]
     Active Substance: MELATONIN
     Dosage: UNK
     Dates: start: 201606
  17. PROAIR HFA [Concomitant]
     Active Substance: ALBUTEROL SULFATE
     Dosage: UNK
     Dates: start: 2015
  18. RANITIDINE. [Concomitant]
     Active Substance: RANITIDINE
     Dosage: 300 MG, DAILY
     Route: 048
     Dates: start: 2015
  19. CYCLOBENZAPRINE. [Concomitant]
     Active Substance: CYCLOBENZAPRINE
     Indication: MUSCLE SPASMS
     Dosage: 10 MG, AS NEEDED (3 TIMES PER DAY)
     Route: 048
     Dates: end: 20160720
  20. PROAIR HFA [Concomitant]
     Active Substance: ALBUTEROL SULFATE
     Indication: DYSPNOEA
     Dosage: 2 DF, AS NEEDED (90MCG/ACTUATION AEROSOL; DOSE: 2 PUFF; ROUTE: INHALED; FREQUENCY: EVERY 4 HOURS)
     Dates: end: 20160720
  21. LYRICA [Suspect]
     Active Substance: PREGABALIN
     Indication: FIBROMYALGIA
     Dosage: 150 MG, 2X/DAY
     Route: 048
     Dates: start: 2015
  22. LYRICA [Suspect]
     Active Substance: PREGABALIN
     Indication: NECK PAIN
     Dosage: 150 MG, 2X/DAY (BID)
  23. LYRICA [Suspect]
     Active Substance: PREGABALIN
     Indication: ARTHRALGIA
  24. LYRICA [Suspect]
     Active Substance: PREGABALIN
     Indication: DISCOMFORT
  25. ATORVASTATIN [Concomitant]
     Active Substance: ATORVASTATIN
     Dosage: 20 MG, DAILY
     Route: 048
     Dates: start: 201508
  26. NORCO [Concomitant]
     Active Substance: ACETAMINOPHEN\HYDROCODONE BITARTRATE
     Dosage: 1 DF, AS NEEDED (HYDROCODONE BITARTRATE:5MG/PARACETAMOL: 325MG AT 1 TABLET DAILY AS NEEDED)
     Route: 048
     Dates: end: 20160720
  27. PROAIR HFA [Concomitant]
     Active Substance: ALBUTEROL SULFATE
     Indication: WHEEZING
  28. LYRICA [Suspect]
     Active Substance: PREGABALIN
     Indication: NEUROPATHY PERIPHERAL
     Dosage: 150 MG, 1X/DAY
     Route: 048
     Dates: start: 201506
  29. ALBUTEROL. [Concomitant]
     Active Substance: ALBUTEROL
     Indication: DYSPNOEA
     Dosage: UNK, AS NEEDED (90MCG/ACTUATION AEROSOL; DOSE: 1 INHALATION; ROUTE: INHALED; EVERY 4 HOUR)
     Dates: start: 2015
  30. ALEVE [Concomitant]
     Active Substance: NAPROXEN SODIUM
     Indication: PAIN
     Dosage: 220 MG, AS NEEDED (2 TIMES PER DAY)
     Route: 048
     Dates: start: 2015
  31. RANITIDINE. [Concomitant]
     Active Substance: RANITIDINE
     Dosage: 300 MG, DAILY
     Route: 048
     Dates: end: 20160720
  32. DICLOFENAC [Concomitant]
     Active Substance: DICLOFENAC
     Dosage: UNK
  33. LOSARTAN. [Concomitant]
     Active Substance: LOSARTAN
     Dosage: UNK

REACTIONS (5)
  - Spinal stenosis [Recovered/Resolved]
  - Insomnia [Not Recovered/Not Resolved]
  - Arthralgia [Recovering/Resolving]
  - Carpal tunnel syndrome [Recovered/Resolved]
  - Pain in extremity [Recovering/Resolving]

NARRATIVE: CASE EVENT DATE: 20150301
